FAERS Safety Report 7109077-6 (Version None)
Quarter: 2010Q4

REPORT INFORMATION
  Report Type: 
  Country: None (occurrence: None)
  Receive Date: 20101117
  Receipt Date: 20101105
  Transmission Date: 20110411
  Serious: Yes (Other)
  Sender: FDA-Public Use
  Company Number: US-PFIZER INC-2010112370

PATIENT
  Sex: Female
  Weight: 52 kg

DRUGS (5)
  1. XALATAN [Suspect]
     Indication: INTRAOCULAR PRESSURE FLUCTUATION
     Dosage: ONE DROP IN EACH EYE, DAILY
     Route: 047
     Dates: start: 20100801
  2. XALATAN [Suspect]
     Indication: GLAUCOMA
  3. WARFARIN [Concomitant]
     Indication: CARDIAC DISORDER
     Dosage: UNK
  4. VALSARTAN [Concomitant]
     Indication: CARDIAC DISORDER
     Dosage: UNK
  5. AMLODIPINE [Concomitant]
     Indication: CARDIAC DISORDER
     Dosage: UNK

REACTIONS (1)
  - MUSCLE SPASMS [None]
